FAERS Safety Report 10414143 (Version 4)
Quarter: 2018Q2

REPORT INFORMATION
  Report Type: Spontaneous
  Country: US (occurrence: US)
  Receive Date: 20140827
  Receipt Date: 20180419
  Transmission Date: 20180711
  Serious: No
  Sender: FDA-Public Use
  Company Number: US-ASTRAZENECA-2013SE67569

PATIENT
  Age: 18773 Day
  Sex: Female
  Weight: 69.4 kg

DRUGS (3)
  1. SYMBICORT [Suspect]
     Active Substance: BUDESONIDE\FORMOTEROL FUMARATE DIHYDRATE
     Indication: ASTHMA
     Dosage: 160/4.5 MCG, TWO PUFFS, BID
     Route: 055
     Dates: start: 2014
  2. BROVANA BUDESONIDE [Concomitant]
     Indication: ASPERGILLUS TEST POSITIVE
  3. SYMBICORT [Suspect]
     Active Substance: BUDESONIDE\FORMOTEROL FUMARATE DIHYDRATE
     Indication: ASTHMA
     Dosage: 160/4.5 MCG, TWO PUFFS, BID
     Route: 055
     Dates: start: 2010

REACTIONS (7)
  - Visual impairment [Unknown]
  - Off label use [Unknown]
  - Wrong technique in product usage process [Unknown]
  - Underdose [Unknown]
  - Expired device used [Unknown]
  - Intentional product misuse [Unknown]
  - Device malfunction [Unknown]

NARRATIVE: CASE EVENT DATE: 20130904
